FAERS Safety Report 13139785 (Version 2)
Quarter: 2017Q2

REPORT INFORMATION
  Report Type: Spontaneous
  Country: US (occurrence: US)
  Receive Date: 20170123
  Receipt Date: 20170502
  Transmission Date: 20170830
  Serious: No
  Sender: FDA-Public Use
  Company Number: US-PFIZER INC-2017029624

PATIENT
  Age: 72 Year
  Sex: Male
  Weight: 84 kg

DRUGS (8)
  1. PERCOCET [Concomitant]
     Active Substance: ACETAMINOPHEN\OXYCODONE HYDROCHLORIDE
     Dosage: 5 MG, 4X/DAY
     Route: 048
     Dates: start: 20161230, end: 20170222
  2. CELEBREX [Suspect]
     Active Substance: CELECOXIB
     Indication: POST PROCEDURAL INFLAMMATION
     Dosage: 100 MG, DAILY
     Route: 048
     Dates: start: 20161227
  3. CELEBREX [Suspect]
     Active Substance: CELECOXIB
     Indication: PAIN
     Dosage: 100 MG, DAILY
     Dates: start: 20161231, end: 20170114
  4. PERCOCET [Concomitant]
     Active Substance: ACETAMINOPHEN\OXYCODONE HYDROCHLORIDE
     Dosage: 25 MG, DAILY, (FOR 24 DAYS)
  5. CELEBREX [Suspect]
     Active Substance: CELECOXIB
     Indication: SWELLING
     Dosage: 200 MG, 1X/DAY
  6. CELEBREX [Suspect]
     Active Substance: CELECOXIB
     Indication: KNEE ARTHROPLASTY
     Dosage: 200 MG, DAILY
     Dates: start: 20170114, end: 20170213
  7. ELIQUIS [Concomitant]
     Active Substance: APIXABAN
     Indication: BLOOD DISORDER
     Dosage: UNK, (10 DAYS)
     Dates: start: 20161231, end: 20170110
  8. TYLENOL [Concomitant]
     Active Substance: ACETAMINOPHEN
     Dosage: 250 MG, 4 TO 5 TIMES A DAY
     Route: 048
     Dates: start: 20170222, end: 20170301

REACTIONS (2)
  - Drug prescribing error [Unknown]
  - Drug ineffective for unapproved indication [Not Recovered/Not Resolved]

NARRATIVE: CASE EVENT DATE: 201612
